FAERS Safety Report 16329234 (Version 5)
Quarter: 2021Q2

REPORT INFORMATION
  Report Type: Report from Study
  Country: BR (occurrence: BR)
  Receive Date: 20190520
  Receipt Date: 20210401
  Transmission Date: 20210716
  Serious: Yes (Hospitalization, Other)
  Sender: FDA-Public Use
  Company Number: BR-EMD SERONO-9071367

PATIENT
  Age: 46 Year
  Sex: Female

DRUGS (9)
  1. REBIF [Suspect]
     Active Substance: INTERFERON BETA-1A
     Indication: MULTIPLE SCLEROSIS
     Route: 058
     Dates: start: 20100122, end: 20191015
  2. VITAMIN C [Concomitant]
     Active Substance: ASCORBIC ACID
     Indication: PRODUCT USED FOR UNKNOWN INDICATION
  3. MIOSAN [Concomitant]
     Active Substance: CYCLOBENZAPRINE
     Indication: PAIN
  4. BIO?MANGUINHOS BETAINTERFERONA 1A 44 MCG [Suspect]
     Active Substance: INTERFERON BETA-1A
     Indication: MULTIPLE SCLEROSIS
     Dosage: THERAPY START DATE 16?OCT?2019
     Route: 058
  5. CLONAZEPAM. [Concomitant]
     Active Substance: CLONAZEPAM
     Indication: SLEEP DISORDER
  6. LITHIUM. [Concomitant]
     Active Substance: LITHIUM
     Indication: DEPRESSION
  7. IRON SULFATE [Concomitant]
     Active Substance: FERROUS SULFATE ANHYDROUS
     Indication: PRODUCT USED FOR UNKNOWN INDICATION
  8. PIROXAM [Concomitant]
     Active Substance: PIROXICAM
     Indication: PRODUCT USED FOR UNKNOWN INDICATION
  9. VITAMIN B COMPLEX                  /00003501/ [Concomitant]
     Active Substance: CALCIUM PANTOTHENATE\NIACINAMIDE\PYRIDOXINE HYDROCHLORIDE\RIBOFLAVIN\THIAMINE HYDROCHLORIDE
     Indication: PRODUCT USED FOR UNKNOWN INDICATION

REACTIONS (29)
  - Intervertebral disc protrusion [Not Recovered/Not Resolved]
  - Headache [Recovered/Resolved]
  - Injection site bruising [Unknown]
  - Hypokinesia [Not Recovered/Not Resolved]
  - Hypoaesthesia [Unknown]
  - Immune system disorder [Unknown]
  - Umbilical hernia [Recovering/Resolving]
  - Feeling cold [Unknown]
  - Urinary incontinence [Not Recovered/Not Resolved]
  - Bladder obstruction [Recovered/Resolved]
  - Asthenia [Unknown]
  - Bladder disorder [Recovering/Resolving]
  - Gastrointestinal hypomotility [Recovering/Resolving]
  - Influenza like illness [Not Recovered/Not Resolved]
  - Paraesthesia [Unknown]
  - Renal cyst [Not Recovered/Not Resolved]
  - Depressed mood [Not Recovered/Not Resolved]
  - Swelling [Recovering/Resolving]
  - Pyrexia [Recovered/Resolved]
  - Procedural pain [Not Recovered/Not Resolved]
  - Ageusia [Not Recovered/Not Resolved]
  - Chills [Recovered/Resolved]
  - Hyperhidrosis [Not Recovered/Not Resolved]
  - Peripheral swelling [Unknown]
  - Anosmia [Not Recovered/Not Resolved]
  - Tendon rupture [Recovering/Resolving]
  - Bursitis [Not Recovered/Not Resolved]
  - Post procedural complication [Unknown]
  - Injection site haematoma [Unknown]

NARRATIVE: CASE EVENT DATE: 2010
